FAERS Safety Report 24942288 (Version 3)
Quarter: 2025Q3

REPORT INFORMATION
  Report Type: Report from Study
  Country: US (occurrence: US)
  Receive Date: 20250207
  Receipt Date: 20250809
  Transmission Date: 20251020
  Serious: Yes (Hospitalization, Other)
  Sender: ALEXION PHARMACEUTICALS
  Company Number: US-AstraZeneca-CH-00800070A

PATIENT
  Sex: Male

DRUGS (1)
  1. STRENSIQ [Suspect]
     Active Substance: ASFOTASE ALFA
     Indication: Hypophosphatasia
     Route: 065

REACTIONS (6)
  - Pancreatitis [Recovering/Resolving]
  - Renal disorder [Recovering/Resolving]
  - Cholelithiasis [Recovering/Resolving]
  - Cardiac disorder [Unknown]
  - Arthritis [Recovering/Resolving]
  - Blood pressure abnormal [Recovering/Resolving]
